FAERS Safety Report 4930006-5 (Version None)
Quarter: 2006Q1

REPORT INFORMATION
  Report Type: 
  Country: None (occurrence: None)
  Receive Date: 20060302
  Receipt Date: 20050527
  Transmission Date: 20060701
  Serious: Yes (Hospitalization)
  Sender: FDA-Public Use
  Company Number: JP-SP-2005-01018

PATIENT
  Age: 56 Year
  Sex: Female

DRUGS (6)
  1. IMMUCYST [Suspect]
     Indication: BLADDER CANCER
     Route: 043
     Dates: start: 20040601, end: 20040706
  2. IMMUCYST [Suspect]
     Route: 043
     Dates: start: 20040601, end: 20040706
  3. DICLOFENAC SODIUM [Suspect]
     Indication: PAIN
     Route: 054
     Dates: start: 20040601, end: 20040706
  4. DICLOFENAC SODIUM [Suspect]
     Route: 054
     Dates: start: 20040601, end: 20040706
  5. AMITRIPTYLINE HYDROCHLORIDE [Concomitant]
     Indication: CYSTITIS INTERSTITIAL
     Route: 048
  6. SUPLATAST TOSILATE [Concomitant]
     Indication: CYSTITIS INTERSTITIAL
     Dosage: UNKNOWN
     Route: 048

REACTIONS (3)
  - DYSURIA [None]
  - POLLAKIURIA [None]
  - URTICARIA GENERALISED [None]
